FAERS Safety Report 4903548-6 (Version None)
Quarter: 2006Q1

REPORT INFORMATION
  Report Type: 
  Country: None (occurrence: None)
  Receive Date: 20060203
  Receipt Date: 20060123
  Transmission Date: 20060701
  Serious: Yes (Other)
  Sender: FDA-Public Use
  Company Number: 2006011758

PATIENT
  Age: 80 Year
  Sex: Female

DRUGS (4)
  1. XALATAN [Suspect]
     Indication: GLAUCOMA
     Dosage: 2 DROP (1 DROP,1 IN 1 D),OPHTHALMIC
     Route: 047
  2. OCUPRESS [Concomitant]
  3. THYROID MEDICATION (ALL OTHER THERAPEUTIC PRODUCTS) [Concomitant]
  4. ATENOLOL [Concomitant]

REACTIONS (5)
  - DRY EYE [None]
  - FOREIGN BODY SENSATION IN EYES [None]
  - HYPERPHAGIA [None]
  - MACULAR DEGENERATION [None]
  - WEIGHT INCREASED [None]
